FAERS Safety Report 14420927 (Version 4)
Quarter: 2019Q3

REPORT INFORMATION
  Report Type: Report from Study
  Country: US (occurrence: CA)
  Receive Date: 20180122
  Receipt Date: 20190920
  Transmission Date: 20191004
  Serious: Yes (Other)
  Sender: FDA-Public Use
  Company Number: US-SUNOVION-2018SUN000188

PATIENT
  Age: 58 Year
  Sex: Female

DRUGS (8)
  1. REACTINE [Concomitant]
     Indication: PRODUCT USED FOR UNKNOWN INDICATION
     Dosage: 200 ?G, UNK
     Route: 065
  2. XOLAIR [Suspect]
     Active Substance: OMALIZUMAB
     Dosage: UNK, (REGIMEN #3)
     Route: 058
     Dates: start: 20171213
  3. XOLAIR [Suspect]
     Active Substance: OMALIZUMAB
     Dosage: 300 MG, 4 WEEKS
     Route: 058
     Dates: start: 20190814
  4. VENTOLIN [Concomitant]
     Active Substance: ALBUTEROL SULFATE
     Indication: PRODUCT USED FOR UNKNOWN INDICATION
     Dosage: 100 ?G, UNK
  5. SYMBICORT [Concomitant]
     Active Substance: BUDESONIDE\FORMOTEROL FUMARATE DIHYDRATE
     Indication: PRODUCT USED FOR UNKNOWN INDICATION
     Dosage: 200 ?G, UNK
     Route: 065
  6. INDACATEROL AND GLYCOPYRROLATE [Suspect]
     Active Substance: GLYCOPYRROLATE\INDACATEROL MALEATE
     Indication: PRODUCT USED FOR UNKNOWN INDICATION
     Dosage: 110 ?G, UNK
     Route: 065
  7. XOLAIR [Suspect]
     Active Substance: OMALIZUMAB
     Indication: ASTHMA
     Dosage: 300 MG, 4 WEEKS UNK (REGIMEN #1)
     Route: 058
     Dates: start: 20160922
  8. XOLAIR [Suspect]
     Active Substance: OMALIZUMAB
     Dosage: UNK, (REGIMEN #2)
     Route: 058
     Dates: start: 20170503

REACTIONS (6)
  - Pneumonia [Unknown]
  - Compression fracture [Unknown]
  - Pyrexia [Recovered/Resolved]
  - Chills [Not Recovered/Not Resolved]
  - Osteoarthritis [Not Recovered/Not Resolved]
  - Weight decreased [Unknown]

NARRATIVE: CASE EVENT DATE: 2017
